FAERS Safety Report 8571209-0 (Version None)
Quarter: 2012Q3

REPORT INFORMATION
  Report Type: 
  Country: None (occurrence: None)
  Receive Date: 20120806
  Receipt Date: 20120731
  Transmission Date: 20120928
  Serious: No
  Sender: FDA-Public Use
  Company Number: US-PFIZER INC-2012187047

PATIENT

DRUGS (1)
  1. NICOTROL [Suspect]
     Dosage: UNK

REACTIONS (1)
  - PHARYNGEAL DISORDER [None]
